FAERS Safety Report 6754872-6 (Version None)
Quarter: 2010Q2

REPORT INFORMATION
  Report Type: 
  Country: None (occurrence: None)
  Receive Date: 20100524
  Receipt Date: 20100204
  Transmission Date: 20101027
  Serious: No
  Sender: FDA-Public Use
  Company Number: 006296

PATIENT
  Sex: Male
  Weight: 91.6 kg

DRUGS (7)
  1. CIMZIA [Suspect]
     Indication: RHEUMATOID ARTHRITIS
     Dosage: 400 MG 1X/2 WEEKS SUBCUTANEOUS
     Route: 058
  2. DIOVAN /01319601/ [Concomitant]
  3. NORVASC [Concomitant]
  4. COREG [Concomitant]
  5. ASPIRIN /01428701/ [Concomitant]
  6. PROTONIX [Concomitant]
  7. CYMBALTA [Concomitant]

REACTIONS (10)
  - ACNE [None]
  - BACK PAIN [None]
  - BLOOD PRESSURE INCREASED [None]
  - DEPRESSED MOOD [None]
  - HEADACHE [None]
  - JOINT SWELLING [None]
  - OEDEMA [None]
  - SINUSITIS [None]
  - SKIN INFECTION [None]
  - WEIGHT INCREASED [None]
